FAERS Safety Report 7885646-0 (Version None)
Quarter: 2011Q4

REPORT INFORMATION
  Report Type: 
  Country: None (occurrence: None)
  Receive Date: 20111102
  Receipt Date: 20111026
  Transmission Date: 20120403
  Serious: Yes (Hospitalization)
  Sender: FDA-Public Use
  Company Number: AU-ASTRAZENECA-2011SE64955

PATIENT
  Age: 69 Year
  Sex: Male

DRUGS (8)
  1. MOBIC [Concomitant]
  2. TICE BCG [Concomitant]
     Dates: start: 20111013
  3. LEVOMIR [Concomitant]
     Dosage: 10 UNITS AT NIGHT
  4. CRESTOR [Concomitant]
     Route: 048
  5. ZOLADEX [Suspect]
     Route: 058
     Dates: start: 20111013
  6. NOVORAPID [Concomitant]
     Dosage: 4 UNITS AT BREAKFAST AND 5 UNITS AT LUNCH
  7. COSUDEX [Concomitant]
  8. ACTARAPID [Concomitant]
     Dosage: 13 UNITS AT DINNER

REACTIONS (2)
  - BLOOD GLUCOSE ABNORMAL [None]
  - LOSS OF CONSCIOUSNESS [None]
